FAERS Safety Report 23590324 (Version 1)
Quarter: 2024Q1

REPORT INFORMATION
  Report Type: Spontaneous
  Country: US (occurrence: None)
  Receive Date: 20240301
  Receipt Date: 20240301
  Transmission Date: 20240410
  Serious: Yes (Other)
  Sender: FDA-Public Use
  Company Number: None

PATIENT
  Age: 46 Year
  Sex: Female
  Weight: 86.4 kg

DRUGS (8)
  1. VRAYLAR [Suspect]
     Active Substance: CARIPRAZINE
     Indication: Bipolar I disorder
     Dosage: OTHER QUANTITY : 21 CAPSULE(S);?FREQUENCY : DAILY;?
     Route: 048
     Dates: start: 20240221, end: 20240301
  2. OZEMPIC [Concomitant]
     Active Substance: SEMAGLUTIDE
  3. DULOXETINE [Concomitant]
     Active Substance: DULOXETINE
  4. METOPROLOL SUCCINATE [Concomitant]
     Active Substance: METOPROLOL SUCCINATE
  5. Hydozazine [Concomitant]
  6. LORAZEPAM [Concomitant]
     Active Substance: LORAZEPAM
  7. HYDROCODONE [Concomitant]
     Active Substance: HYDROCODONE
  8. Mary Ruths liquid Multi vit [Concomitant]

REACTIONS (1)
  - Tremor [None]

NARRATIVE: CASE EVENT DATE: 20240301
